FAERS Safety Report 17609415 (Version 4)
Quarter: 2021Q1

REPORT INFORMATION
  Report Type: Report from Study
  Country: BR (occurrence: BR)
  Receive Date: 20200401
  Receipt Date: 20210222
  Transmission Date: 20210419
  Serious: Yes (Other)
  Sender: FDA-Public Use
  Company Number: NVSC2020BR074362

PATIENT
  Age: 37 Year
  Sex: Female
  Weight: 61 kg

DRUGS (4)
  1. KISQALI [Suspect]
     Active Substance: RIBOCICLIB
     Indication: BREAST CANCER METASTATIC
     Dosage: 1 DF, QD
     Route: 048
     Dates: start: 201907
  2. XGEVA [Concomitant]
     Active Substance: DENOSUMAB
     Indication: METASTASES TO BONE
     Dosage: UNK (TRIMESTRAL)
     Route: 058
     Dates: start: 201801
  3. FEMARA [Suspect]
     Active Substance: LETROZOLE
     Indication: BREAST CANCER METASTATIC
     Dosage: UNK UNK, QD
     Route: 048
     Dates: start: 201801
  4. KISQALI [Suspect]
     Active Substance: RIBOCICLIB
     Dosage: 1 DF, QD
     Route: 048
     Dates: start: 20190806

REACTIONS (10)
  - Discouragement [Not Recovered/Not Resolved]
  - Blood test abnormal [Unknown]
  - Breast cancer metastatic [Not Recovered/Not Resolved]
  - Soft tissue injury [Unknown]
  - Lymphadenopathy [Not Recovered/Not Resolved]
  - White blood cell count decreased [Not Recovered/Not Resolved]
  - Malignant neoplasm progression [Not Recovered/Not Resolved]
  - Decreased immune responsiveness [Not Recovered/Not Resolved]
  - Anxiety [Unknown]
  - Osteolysis [Unknown]

NARRATIVE: CASE EVENT DATE: 202002
